FAERS Safety Report 25743801 (Version 1)
Quarter: 2025Q3

REPORT INFORMATION
  Report Type: Report from Study
  Country: US (occurrence: US)
  Receive Date: 20250831
  Receipt Date: 20250831
  Transmission Date: 20251021
  Serious: Yes (Other)
  Sender: ABBVIE
  Company Number: US-ABBVIE-6435286

PATIENT
  Age: 74 Year
  Sex: Male

DRUGS (1)
  1. HUMIRA [Suspect]
     Active Substance: ADALIMUMAB
     Indication: Product used for unknown indication
     Route: 058
     Dates: start: 20180403

REACTIONS (1)
  - Dialysis [Unknown]

NARRATIVE: CASE EVENT DATE: 20190101
